FAERS Safety Report 14145002 (Version 1)
Quarter: 2017Q4

REPORT INFORMATION
  Report Type: Spontaneous
  Country: US (occurrence: None)
  Receive Date: 20171030
  Receipt Date: 20171030
  Transmission Date: 20180321
  Serious: No
  Sender: FDA-Public Use
  Company Number: None

PATIENT
  Sex: Female
  Weight: 62.6 kg

DRUGS (3)
  1. ACTHAR [Suspect]
     Active Substance: CORTICOTROPIN
     Indication: ENDOCRINE DISORDER
     Dosage: DOSE AMOUNT - 80 UNITS
     Route: 058
     Dates: start: 201708
  2. ACTHAR [Suspect]
     Active Substance: CORTICOTROPIN
     Indication: RHEUMATOID ARTHRITIS
     Dosage: DOSE AMOUNT - 80 UNITS
     Route: 058
     Dates: start: 201708
  3. ACTHAR [Suspect]
     Active Substance: CORTICOTROPIN
     Indication: SARCOIDOSIS
     Dosage: DOSE AMOUNT - 80 UNITS
     Route: 058
     Dates: start: 201708

REACTIONS (4)
  - Malaise [None]
  - Fatigue [None]
  - Flushing [None]
  - Influenza [None]
